FAERS Safety Report 4763008-2 (Version None)
Quarter: 2005Q3

REPORT INFORMATION
  Report Type: 
  Country: None (occurrence: None)
  Receive Date: 20050907
  Receipt Date: 20050309
  Transmission Date: 20060218
  Serious: Yes (Hospitalization, Disabling)
  Sender: FDA-Public Use
  Company Number: US-MERCK-0503USA01764

PATIENT
  Age: 65 Year
  Sex: Female
  Weight: 57 kg

DRUGS (19)
  1. VIOXX [Suspect]
     Indication: SPONDYLITIS
     Route: 048
     Dates: start: 20010101, end: 20041001
  2. VIOXX [Suspect]
     Route: 048
     Dates: start: 20010101, end: 20041001
  3. CELEBREX [Concomitant]
     Route: 065
     Dates: start: 20040801
  4. ZOCOR [Concomitant]
     Indication: BLOOD CHOLESTEROL INCREASED
     Route: 065
  5. SINGULAIR [Concomitant]
     Indication: ASTHMA
     Route: 065
  6. ALBUTEROL [Concomitant]
     Indication: ASTHMA
     Route: 065
  7. ACTOS [Concomitant]
     Indication: DIABETES MELLITUS
     Route: 065
  8. GLUCOPHAGE [Concomitant]
     Indication: DIABETES MELLITUS
     Route: 065
  9. GLIPIZIDE [Concomitant]
     Indication: DIABETES MELLITUS
     Route: 065
  10. LOPRESSOR [Concomitant]
     Indication: HYPERTENSION
     Route: 065
  11. METOPROLOL [Concomitant]
     Indication: HYPERTENSION
     Route: 065
  12. QUINAPRIL HYDROCHLORIDE [Concomitant]
     Indication: HYPERTENSION
     Route: 065
  13. ACCUPRIL [Concomitant]
     Indication: HYPERTENSION
     Route: 065
  14. DURAGESIC-100 [Concomitant]
     Indication: PAIN
     Route: 065
  15. PLETAL [Concomitant]
     Indication: PAIN
     Route: 065
  16. METOCLOPRAMIDE [Concomitant]
     Indication: GASTRIC DISORDER
     Route: 065
  17. VITAMINS (UNSPECIFIED) [Concomitant]
     Route: 065
  18. ASCORBIC ACID [Concomitant]
     Route: 065
  19. CALCIUM (UNSPECIFIED) [Concomitant]
     Route: 065

REACTIONS (10)
  - ACCELERATED HYPERTENSION [None]
  - ANHEDONIA [None]
  - CEREBROVASCULAR ACCIDENT [None]
  - CORONARY ARTERY DISEASE [None]
  - DIABETES MELLITUS MALNUTRITION-RELATED [None]
  - DIABETES MELLITUS NON-INSULIN-DEPENDENT [None]
  - EMOTIONAL DISTRESS [None]
  - EXCORIATION [None]
  - FALL [None]
  - STOMACH DISCOMFORT [None]
